FAERS Safety Report 7559844-X (Version None)
Quarter: 2011Q2

REPORT INFORMATION
  Report Type: 
  Country: None (occurrence: None)
  Receive Date: 20110621
  Receipt Date: 20110613
  Transmission Date: 20111010
  Serious: Yes (Other)
  Sender: FDA-Public Use
  Company Number: PHHY2011TR52031

PATIENT
  Age: 12 Year
  Sex: Male

DRUGS (6)
  1. VINCRISTINE [Suspect]
     Indication: ACUTE LYMPHOCYTIC LEUKAEMIA
     Dosage: 1.5 MG/M2, PER DOSE
  2. METHOTREXATE [Suspect]
     Route: 037
  3. CYTARABINE [Suspect]
     Indication: ACUTE LYMPHOCYTIC LEUKAEMIA
     Route: 037
  4. METHOTREXATE [Suspect]
     Indication: ACUTE LYMPHOCYTIC LEUKAEMIA
     Dosage: 5 MG/M2/24 HRS
     Route: 042
  5. PREDNISONE [Suspect]
     Indication: ACUTE LYMPHOCYTIC LEUKAEMIA
  6. DEXAMETHASONE [Suspect]
     Indication: ACUTE LYMPHOCYTIC LEUKAEMIA
     Dosage: 20 MG/M2, PER DAY

REACTIONS (8)
  - MENTAL STATUS CHANGES [None]
  - DELIRIUM [None]
  - GRAND MAL CONVULSION [None]
  - POSTERIOR REVERSIBLE ENCEPHALOPATHY SYNDROME [None]
  - VASOGENIC CEREBRAL OEDEMA [None]
  - HALLUCINATION, VISUAL [None]
  - BLINDNESS [None]
  - BLOOD PRESSURE INCREASED [None]
